FAERS Safety Report 12386751 (Version 2)
Quarter: 2016Q2

REPORT INFORMATION
  Report Type: Report from Study
  Country: US (occurrence: US)
  Receive Date: 20160519
  Receipt Date: 20160609
  Transmission Date: 20160815
  Serious: Yes (Death)
  Sender: FDA-Public Use
  Company Number: US-ACTELION-A-NJ2016-136184

PATIENT
  Age: 57 Year
  Sex: Female

DRUGS (15)
  1. XOPENEX [Concomitant]
     Active Substance: LEVALBUTEROL HYDROCHLORIDE
  2. ATOVAQUONE. [Concomitant]
     Active Substance: ATOVAQUONE
  3. COLACE [Concomitant]
     Active Substance: DOCUSATE SODIUM
  4. IRON [Concomitant]
     Active Substance: IRON
  5. NEXIUM [Concomitant]
     Active Substance: ESOMEPRAZOLE MAGNESIUM
  6. EPOPROSTENOL. [Concomitant]
     Active Substance: EPOPROSTENOL
  7. PREDNISONE. [Concomitant]
     Active Substance: PREDNISONE
  8. TRACLEER [Suspect]
     Active Substance: BOSENTAN
     Indication: PULMONARY ARTERIAL HYPERTENSION
     Dosage: 125 MG, BID
     Route: 048
     Dates: start: 20130222, end: 20160510
  9. MYCOPHENOLATE [Concomitant]
     Active Substance: MYCOPHENOLIC ACID
  10. LORAZEPAM. [Concomitant]
     Active Substance: LORAZEPAM
  11. OXYGEN. [Concomitant]
     Active Substance: OXYGEN
  12. MONTELUKAST [Concomitant]
     Active Substance: MONTELUKAST SODIUM
  13. FUROSEMIDE. [Concomitant]
     Active Substance: FUROSEMIDE
  14. BENZONATATE. [Concomitant]
     Active Substance: BENZONATATE
  15. SYNTHROID [Concomitant]
     Active Substance: LEVOTHYROXINE SODIUM

REACTIONS (1)
  - Respiratory failure [Fatal]

NARRATIVE: CASE EVENT DATE: 20160510
